FAERS Safety Report 6091618-1 (Version None)
Quarter: 2009Q1

REPORT INFORMATION
  Report Type: 
  Country: None (occurrence: None)
  Receive Date: 20090225
  Receipt Date: 20080228
  Transmission Date: 20090719
  Serious: Yes (Disabling, Other)
  Sender: FDA-Public Use
  Company Number: A0712448A

PATIENT
  Age: 59 Year
  Sex: Male

DRUGS (12)
  1. VALTREX [Suspect]
     Indication: HERPES SIMPLEX
     Dosage: 1G PER DAY
     Route: 048
     Dates: start: 20080107, end: 20080226
  2. METOPROLOL [Concomitant]
  3. BENICAR [Concomitant]
  4. SINGULAIR [Concomitant]
  5. SEROQUEL [Concomitant]
  6. LIPITOR [Concomitant]
  7. AMBIEN [Concomitant]
  8. BRIMONIDINE TARTRATE [Concomitant]
  9. FLONASE [Concomitant]
     Dosage: 4SPR AT NIGHT
  10. FLOVENT [Concomitant]
     Dosage: 2PUFF PER DAY
  11. XANAX [Concomitant]
  12. XALATAN [Concomitant]

REACTIONS (1)
  - NEUTROPHIL COUNT DECREASED [None]
